FAERS Safety Report 6963710-8 (Version None)
Quarter: 2010Q3

REPORT INFORMATION
  Report Type: 
  Country: None (occurrence: None)
  Receive Date: 20100902
  Receipt Date: 20100831
  Transmission Date: 20110219
  Serious: Yes (Other)
  Sender: FDA-Public Use
  Company Number: US-CEPHALON-2010004659

PATIENT
  Sex: Female
  Weight: 61 kg

DRUGS (5)
  1. NUVIGIL [Suspect]
     Indication: FATIGUE
     Route: 048
     Dates: start: 20100501, end: 20100801
  2. LEXAPRO [Concomitant]
     Dates: start: 20100301
  3. SIMVASTATIN [Concomitant]
     Dates: start: 20050101
  4. OXYBUTYNIN [Concomitant]
     Dates: start: 20050101
  5. ASPIRIN [Concomitant]

REACTIONS (7)
  - DRY MOUTH [None]
  - GASTROOESOPHAGEAL REFLUX DISEASE [None]
  - ORAL DISCOMFORT [None]
  - SPEECH DISORDER [None]
  - SWOLLEN TONGUE [None]
  - TONGUE DISCOLOURATION [None]
  - TONGUE ULCERATION [None]
